FAERS Safety Report 5662177-X (Version None)
Quarter: 2008Q1

REPORT INFORMATION
  Report Type: 
  Country: None (occurrence: None)
  Receive Date: 20080221
  Receipt Date: 20070813
  Transmission Date: 20080703
  Serious: Yes (Other)
  Sender: FDA-Public Use
  Company Number: PHEH2007US11107

PATIENT
  Sex: Female

DRUGS (1)
  1. DIOVAN [Suspect]
     Dosage: 40MG
     Dates: start: 20070811

REACTIONS (3)
  - DIZZINESS [None]
  - HEADACHE [None]
  - HYPOTENSION [None]
